FAERS Safety Report 6227086-6 (Version None)
Quarter: 2009Q2

REPORT INFORMATION
  Report Type: 
  Country: None (occurrence: None)
  Receive Date: 20090612
  Receipt Date: 20090527
  Transmission Date: 20091009
  Serious: No
  Sender: FDA-Public Use
  Company Number: US-ABBOTT-09P-163-0576214-00

PATIENT
  Sex: Female
  Weight: 79.45 kg

DRUGS (14)
  1. HUMIRA [Suspect]
     Indication: RHEUMATOID ARTHRITIS
     Route: 058
     Dates: start: 20040101
  2. NAPROXEN [Concomitant]
     Indication: RHEUMATOID ARTHRITIS
  3. ACIPHEX [Concomitant]
     Indication: GASTROOESOPHAGEAL REFLUX DISEASE
  4. COREG [Concomitant]
     Indication: HYPERTENSION
  5. PROCARDIA [Concomitant]
     Indication: HYPERTENSION
  6. HYZAAR [Concomitant]
     Indication: HYPERTENSION
  7. PREMPRO [Concomitant]
     Indication: HOT FLUSH
  8. PREMPRO [Concomitant]
     Indication: MENOPAUSE
  9. CALCIUM [Concomitant]
     Indication: MINERAL SUPPLEMENTATION
  10. POTASSIUM CHLORIDE [Concomitant]
     Indication: BLOOD POTASSIUM DECREASED
  11. VITAMIN D [Concomitant]
     Indication: VITAMIN SUPPLEMENTATION
  12. TRANXENE [Concomitant]
     Indication: ANXIETY
  13. FLEXERIL [Concomitant]
     Indication: MUSCLE RELAXANT THERAPY
  14. PERCOCET [Concomitant]
     Indication: PAIN

REACTIONS (1)
  - DRUG DOSE OMISSION [None]
